FAERS Safety Report 12686299 (Version 1)
Quarter: 2016Q3

REPORT INFORMATION
  Report Type: Spontaneous
  Country: CN (occurrence: CN)
  Receive Date: 20160825
  Receipt Date: 20160825
  Transmission Date: 20161109
  Serious: Yes (Other)
  Sender: FDA-Public Use
  Company Number: CN-TELIGENT, INC-IGIL20160250

PATIENT
  Age: 62 Year
  Sex: Female
  Weight: 48 kg

DRUGS (8)
  1. CEFOPERAZONE + SULBACTAM [Suspect]
     Active Substance: CEFOPERAZONE SODIUM\SULBACTAM SODIUM
     Indication: ANTI-INFECTIVE THERAPY
     Route: 041
     Dates: start: 20160509, end: 20160522
  2. COMPOUND AMNIO ACID [Suspect]
     Active Substance: AMINO ACIDS
     Indication: NUTRITIONAL SUPPLEMENTATION
     Route: 041
     Dates: start: 20160507, end: 20160521
  3. SODIUM CHLORIDE. [Concomitant]
     Active Substance: SODIUM CHLORIDE
     Indication: PRODUCT USED FOR UNKNOWN INDICATION
     Dates: start: 20160507, end: 20160523
  4. CEFTAZIDIME. [Suspect]
     Active Substance: CEFTAZIDIME
     Indication: ANTI-INFECTIVE THERAPY
     Dosage: CEFTAZIDIME 3 GM IN 100 ML 0.9% SODIUM CHLORIDE TWICE DAILY
     Route: 041
     Dates: start: 20160507, end: 20160509
  5. FENBID [Suspect]
     Active Substance: IBUPROFEN
     Indication: PAIN
     Route: 048
     Dates: start: 20160512, end: 20160522
  6. ASARONE [Suspect]
     Active Substance: .ALPHA.-ASARONE
     Indication: PNEUMONIA
     Route: 041
     Dates: start: 20160507, end: 20160521
  7. ASARONE [Suspect]
     Active Substance: .ALPHA.-ASARONE
     Indication: RESPIRATORY DISORDER
  8. COMPOUND DIISOPROPYLAMINE DICHLOROACETATE [Suspect]
     Active Substance: DIISOPROPYLAMMONIUM DICHLOROACETATE
     Indication: HEPATIC FUNCTION ABNORMAL
     Route: 041
     Dates: start: 20160513, end: 20160518

REACTIONS (6)
  - Rash maculo-papular [Recovered/Resolved]
  - Pruritus [Recovered/Resolved]
  - Chest pain [Unknown]
  - Drug ineffective [Recovered/Resolved]
  - Rash [Recovered/Resolved]
  - Hepatic function abnormal [Unknown]

NARRATIVE: CASE EVENT DATE: 20160512
